FAERS Safety Report 8022207-7 (Version None)
Quarter: 2012Q1

REPORT INFORMATION
  Report Type: 
  Country: None (occurrence: None)
  Receive Date: 20120104
  Receipt Date: 20111227
  Transmission Date: 20120608
  Serious: Yes (Hospitalization, Other)
  Sender: FDA-Public Use
  Company Number: US-BAYER-2011-087551

PATIENT
  Age: 16 Year
  Sex: Female
  Weight: 77.4 kg

DRUGS (6)
  1. YAZ [Suspect]
     Indication: CONTRACEPTION
     Dosage: UNK
     Dates: start: 20080101, end: 20090101
  2. PREVACID [Concomitant]
  3. MIRALAX [Concomitant]
  4. SUCRALFATE [Concomitant]
  5. DICYCLOMINE [Concomitant]
  6. YAZ [Suspect]
     Indication: ACNE

REACTIONS (5)
  - CHOLECYSTITIS CHRONIC [None]
  - INJURY [None]
  - BILE DUCT STONE [None]
  - GALLBLADDER DISORDER [None]
  - PAIN [None]
